FAERS Safety Report 6068158-9 (Version None)
Quarter: 2009Q1

REPORT INFORMATION
  Report Type: 
  Country: None (occurrence: None)
  Receive Date: 20090206
  Receipt Date: 20090127
  Transmission Date: 20090719
  Serious: Yes (Hospitalization)
  Sender: FDA-Public Use
  Company Number: FR-PFIZER INC-2008099256

PATIENT

DRUGS (3)
  1. SUNITINIB MALATE [Suspect]
     Indication: BREAST CANCER
     Dosage: 37.5 MG, 1X/DAY
     Route: 048
     Dates: start: 20081011, end: 20081119
  2. *CAPECITABINE [Suspect]
     Indication: BREAST CANCER
     Dosage: 1150 MG, 2X/DAY
     Route: 048
     Dates: start: 20081011
  3. SINTROM [Concomitant]
     Indication: THROMBOSIS PROPHYLAXIS
     Dates: start: 20080601, end: 20081119

REACTIONS (1)
  - GENERAL PHYSICAL HEALTH DETERIORATION [None]
